FAERS Safety Report 10008525 (Version 1)
Quarter: 2014Q1

REPORT INFORMATION
  Report Type: Report from Study
  Country: US (occurrence: US)
  Receive Date: 20140313
  Receipt Date: 20140313
  Transmission Date: 20141002
  Serious: Yes (Death)
  Sender: FDA-Public Use
  Company Number: US-ACTELION-A-US2014-95850

PATIENT
  Age: 86 Year
  Sex: Female

DRUGS (2)
  1. TRACLEER [Suspect]
     Indication: SJOGREN^S SYNDROME
     Dosage: UNK
     Route: 048
     Dates: end: 20140221
  2. XARELTO [Concomitant]

REACTIONS (1)
  - Cardiac failure congestive [Fatal]
